FAERS Safety Report 18733092 (Version 1)
Quarter: 2021Q1

REPORT INFORMATION
  Report Type: Spontaneous
  Country: US (occurrence: US)
  Receive Date: 20210113
  Receipt Date: 20210113
  Transmission Date: 20210419
  Serious: Yes (Other)
  Sender: FDA-Public Use
  Company Number: US-CIPLA LTD.-2021US00231

PATIENT

DRUGS (10)
  1. GEMFIBROZIL. [Suspect]
     Active Substance: GEMFIBROZIL
     Indication: INBORN ERROR OF LIPID METABOLISM
     Dosage: UNK
     Route: 065
  2. EVOLOCUMAB [Suspect]
     Active Substance: EVOLOCUMAB
     Indication: INBORN ERROR OF LIPID METABOLISM
     Dosage: UNK
     Route: 065
  3. ROSUVASTATIN. [Suspect]
     Active Substance: ROSUVASTATIN
     Indication: HYPERTRIGLYCERIDAEMIA
  4. FISH OIL [Suspect]
     Active Substance: FISH OIL
     Indication: HYPERTRIGLYCERIDAEMIA
  5. FENOFIBRATE. [Suspect]
     Active Substance: FENOFIBRATE
     Indication: HYPERTRIGLYCERIDAEMIA
  6. EVOLOCUMAB [Suspect]
     Active Substance: EVOLOCUMAB
     Indication: HYPERTRIGLYCERIDAEMIA
  7. FENOFIBRATE. [Suspect]
     Active Substance: FENOFIBRATE
     Indication: INBORN ERROR OF LIPID METABOLISM
     Dosage: UNK
     Route: 065
  8. ROSUVASTATIN. [Suspect]
     Active Substance: ROSUVASTATIN
     Indication: INBORN ERROR OF LIPID METABOLISM
     Dosage: UNK
     Route: 065
  9. GEMFIBROZIL. [Suspect]
     Active Substance: GEMFIBROZIL
     Indication: HYPERTRIGLYCERIDAEMIA
  10. FISH OIL [Suspect]
     Active Substance: FISH OIL
     Indication: INBORN ERROR OF LIPID METABOLISM
     Dosage: UNK
     Route: 065

REACTIONS (1)
  - Drug ineffective [Unknown]
